FAERS Safety Report 25845225 (Version 1)
Quarter: 2025Q3

REPORT INFORMATION
  Report Type: Spontaneous
  Country: CA (occurrence: CA)
  Receive Date: 20250925
  Receipt Date: 20250925
  Transmission Date: 20251020
  Serious: Yes (Death, Life-Threatening, Hospitalization, Disabling, Congenital Anomaly, Other)
  Sender: Haleon PLC
  Company Number: CA-002147023-NVSC2023CA013469

PATIENT
  Age: 43 Year
  Sex: Female
  Weight: 68 kg

DRUGS (346)
  1. DICLOFENAC [Suspect]
     Active Substance: DICLOFENAC
     Indication: Product used for unknown indication
  2. HYDROXYCHLOROQUINE [Suspect]
     Active Substance: HYDROXYCHLOROQUINE
     Indication: Rheumatoid arthritis
  3. HYDROXYCHLOROQUINE [Suspect]
     Active Substance: HYDROXYCHLOROQUINE
  4. HYDROXYCHLOROQUINE [Suspect]
     Active Substance: HYDROXYCHLOROQUINE
     Dosage: UNK UNK, QD (DOSE 40, QD)
     Route: 066
  5. HYDROXYCHLOROQUINE [Suspect]
     Active Substance: HYDROXYCHLOROQUINE
     Dosage: 420 MG, QD  ROUTE:UNKNOWN
  6. HYDROXYCHLOROQUINE [Suspect]
     Active Substance: HYDROXYCHLOROQUINE
     Dosage: 400 MG, QD
     Route: 048
  7. RITUXIMAB [Suspect]
     Active Substance: RITUXIMAB
     Indication: Rheumatoid arthritis
     Route: 050
  8. RITUXIMAB [Suspect]
     Active Substance: RITUXIMAB
     Route: 058
  9. RITUXIMAB [Suspect]
     Active Substance: RITUXIMAB
     Route: 050
  10. RITUXIMAB [Suspect]
     Active Substance: RITUXIMAB
     Route: 042
  11. OTEZLA [Suspect]
     Active Substance: APREMILAST
     Indication: Product used for unknown indication
  12. OTEZLA [Suspect]
     Active Substance: APREMILAST
     Dosage: 3 MG, BID
     Route: 048
  13. OTEZLA [Suspect]
     Active Substance: APREMILAST
     Dosage: 3 MG, BID
     Route: 050
  14. NEOMYCIN [Suspect]
     Active Substance: NEOMYCIN
     Indication: Product used for unknown indication
  15. NEOMYCIN [Suspect]
     Active Substance: NEOMYCIN
  16. INFLIXIMAB [Suspect]
     Active Substance: INFLIXIMAB
     Indication: Rheumatoid arthritis
  17. INFLIXIMAB [Suspect]
     Active Substance: INFLIXIMAB
  18. INFLIXIMAB [Suspect]
     Active Substance: INFLIXIMAB
  19. VOLTAREN [Suspect]
     Active Substance: DICLOFENAC SODIUM
     Indication: Product used for unknown indication
  20. VOLTAREN [Suspect]
     Active Substance: DICLOFENAC SODIUM
  21. VOLTAREN [Suspect]
     Active Substance: DICLOFENAC SODIUM
  22. CELEBREX [Suspect]
     Active Substance: CELECOXIB
     Indication: Product used for unknown indication
     Dosage: 20 MG, QD
     Route: 048
  23. CELEBREX [Suspect]
     Active Substance: CELECOXIB
     Dosage: 2 DF, QD
     Route: 048
  24. LYRICA [Suspect]
     Active Substance: PREGABALIN
     Indication: Product used for unknown indication
  25. LYRICA [Suspect]
     Active Substance: PREGABALIN
  26. SULFAMETHOXAZOLE\TRIMETHOPRIM [Suspect]
     Active Substance: SULFAMETHOXAZOLE\TRIMETHOPRIM
     Indication: Product used for unknown indication
  27. PSEUDOEPHEDRINE HYDROCHLORIDE [Suspect]
     Active Substance: PSEUDOEPHEDRINE HYDROCHLORIDE
     Indication: Product used for unknown indication
  28. PSEUDOEPHEDRINE HYDROCHLORIDE [Suspect]
     Active Substance: PSEUDOEPHEDRINE HYDROCHLORIDE
  29. XELJANZ [Suspect]
     Active Substance: TOFACITINIB CITRATE
     Indication: Rheumatoid arthritis
     Dosage: 5 MG, WE (QW) ROUTE:UNKNOWN
  30. XELJANZ [Suspect]
     Active Substance: TOFACITINIB CITRATE
     Indication: Psoriatic arthropathy
     Dosage: 5 MG, QD
     Route: 048
  31. XELJANZ [Suspect]
     Active Substance: TOFACITINIB CITRATE
  32. XELJANZ [Suspect]
     Active Substance: TOFACITINIB CITRATE
     Dosage: DOSE 5, BID ROUTE:UNKNOWN
  33. XELJANZ [Suspect]
     Active Substance: TOFACITINIB CITRATE
  34. XELJANZ [Suspect]
     Active Substance: TOFACITINIB CITRATE
     Dosage: 5 MG, BID ROUTE:UNKNOWN
  35. XELJANZ [Suspect]
     Active Substance: TOFACITINIB CITRATE
  36. XELJANZ [Suspect]
     Active Substance: TOFACITINIB CITRATE
     Dosage: DOSE 5, BID ROUTE:UNKNOWN
  37. XELJANZ [Suspect]
     Active Substance: TOFACITINIB CITRATE
     Dosage: 10 MG ROUTE:UNKNOWN
  38. XELJANZ [Suspect]
     Active Substance: TOFACITINIB CITRATE
     Dosage: 5 MG, BID ROUTE:UNKNOWN
  39. XELJANZ [Suspect]
     Active Substance: TOFACITINIB CITRATE
  40. XELJANZ [Suspect]
     Active Substance: TOFACITINIB CITRATE
     Dosage: 5 MG, WE (QW)
     Route: 048
  41. SULFAMETHOXAZOLE [Suspect]
     Active Substance: SULFAMETHOXAZOLE
     Indication: Product used for unknown indication
  42. SULFAMETHOXAZOLE [Suspect]
     Active Substance: SULFAMETHOXAZOLE
  43. CETIRIZINE HYDROCHLORIDE [Suspect]
     Active Substance: CETIRIZINE HYDROCHLORIDE
     Indication: Rheumatoid arthritis
     Dosage: 10 MG, QD
     Route: 048
  44. CETIRIZINE HYDROCHLORIDE [Suspect]
     Active Substance: CETIRIZINE HYDROCHLORIDE
     Indication: Off label use
  45. FOSAMAX [Suspect]
     Active Substance: ALENDRONATE SODIUM
     Indication: Product used for unknown indication
     Route: 050
  46. FOSAMAX [Suspect]
     Active Substance: ALENDRONATE SODIUM
     Route: 048
  47. PREDNISONE [Suspect]
     Active Substance: PREDNISONE
     Indication: Psoriatic arthropathy
  48. PREDNISONE [Suspect]
     Active Substance: PREDNISONE
     Indication: Rheumatoid arthritis
  49. PREDNISONE [Suspect]
     Active Substance: PREDNISONE
     Indication: Condition aggravated
  50. PREDNISONE [Suspect]
     Active Substance: PREDNISONE
  51. PREDNISONE [Suspect]
     Active Substance: PREDNISONE
     Route: 048
  52. PREDNISONE [Suspect]
     Active Substance: PREDNISONE
     Route: 048
  53. METHOTREXATE SODIUM [Suspect]
     Active Substance: METHOTREXATE SODIUM
     Indication: Rheumatoid arthritis
     Route: 048
  54. METHOTREXATE SODIUM [Suspect]
     Active Substance: METHOTREXATE SODIUM
     Route: 058
  55. METHOTREXATE SODIUM [Suspect]
     Active Substance: METHOTREXATE SODIUM
     Route: 048
  56. CIMZIA [Suspect]
     Active Substance: CERTOLIZUMAB PEGOL
     Indication: Rheumatoid arthritis
     Route: 058
  57. CIMZIA [Suspect]
     Active Substance: CERTOLIZUMAB PEGOL
  58. CIMZIA [Suspect]
     Active Substance: CERTOLIZUMAB PEGOL
  59. CIMZIA [Suspect]
     Active Substance: CERTOLIZUMAB PEGOL
     Route: 058
  60. ACTEMRA [Suspect]
     Active Substance: TOCILIZUMAB
     Indication: Rheumatoid arthritis
     Route: 050
  61. ACTEMRA [Suspect]
     Active Substance: TOCILIZUMAB
     Route: 058
  62. ACTEMRA [Suspect]
     Active Substance: TOCILIZUMAB
  63. ACTEMRA [Suspect]
     Active Substance: TOCILIZUMAB
  64. ACTEMRA [Suspect]
     Active Substance: TOCILIZUMAB
     Route: 048
  65. ACTEMRA [Suspect]
     Active Substance: TOCILIZUMAB
     Route: 050
  66. ACTEMRA [Suspect]
     Active Substance: TOCILIZUMAB
  67. ACTEMRA [Suspect]
     Active Substance: TOCILIZUMAB
     Route: 050
  68. ACTEMRA [Suspect]
     Active Substance: TOCILIZUMAB
     Route: 058
  69. ACTEMRA [Suspect]
     Active Substance: TOCILIZUMAB
  70. ACTEMRA [Suspect]
     Active Substance: TOCILIZUMAB
     Route: 058
  71. ACTEMRA [Suspect]
     Active Substance: TOCILIZUMAB
  72. ACTEMRA [Suspect]
     Active Substance: TOCILIZUMAB
  73. ACTEMRA [Suspect]
     Active Substance: TOCILIZUMAB
  74. ACTEMRA [Suspect]
     Active Substance: TOCILIZUMAB
  75. ALENDRONATE [Suspect]
     Active Substance: ALENDRONATE SODIUM
     Indication: Rheumatoid arthritis
     Route: 050
  76. ALENDRONATE [Suspect]
     Active Substance: ALENDRONATE SODIUM
  77. HYDROXYCHLOROQUINE SULFATE [Suspect]
     Active Substance: HYDROXYCHLOROQUINE SULFATE
     Indication: Rheumatoid arthritis
  78. HYDROXYCHLOROQUINE SULFATE [Suspect]
     Active Substance: HYDROXYCHLOROQUINE SULFATE
  79. ARAVA [Suspect]
     Active Substance: LEFLUNOMIDE
     Indication: Rheumatoid arthritis
     Route: 050
  80. ARAVA [Suspect]
     Active Substance: LEFLUNOMIDE
     Route: 048
  81. ARAVA [Suspect]
     Active Substance: LEFLUNOMIDE
     Dosage: 20 MG, QD
     Route: 048
  82. ARAVA [Suspect]
     Active Substance: LEFLUNOMIDE
  83. ARAVA [Suspect]
     Active Substance: LEFLUNOMIDE
  84. SULFASALAZINE [Suspect]
     Active Substance: SULFASALAZINE
     Indication: Rheumatoid arthritis
     Route: 050
  85. SULFASALAZINE [Suspect]
     Active Substance: SULFASALAZINE
  86. SULFASALAZINE [Suspect]
     Active Substance: SULFASALAZINE
     Route: 050
  87. SULFASALAZINE [Suspect]
     Active Substance: SULFASALAZINE
  88. SULFASALAZINE [Suspect]
     Active Substance: SULFASALAZINE
     Dosage: 1000 MG, BID, ROUTE : UNKNOWN
  89. SULFASALAZINE [Suspect]
     Active Substance: SULFASALAZINE
     Route: 048
  90. SULFASALAZINE [Suspect]
     Active Substance: SULFASALAZINE
     Dosage: 1 G, QD ROUTE:UNKNOWN
  91. SULFASALAZINE [Suspect]
     Active Substance: SULFASALAZINE
  92. SULFASALAZINE [Suspect]
     Active Substance: SULFASALAZINE
     Route: 048
  93. SULFASALAZINE [Suspect]
     Active Substance: SULFASALAZINE
     Dosage: 2000 MG, QD
     Route: 050
  94. SULFASALAZINE [Suspect]
     Active Substance: SULFASALAZINE
     Dosage: 1 G, BID ROUTE:UNKNOWN
  95. SULFASALAZINE [Suspect]
     Active Substance: SULFASALAZINE
     Route: 050
  96. SULFASALAZINE [Suspect]
     Active Substance: SULFASALAZINE
     Dosage: 1 G, BID ROUTE: UNKNOWN
  97. SULFASALAZINE [Suspect]
     Active Substance: SULFASALAZINE
     Dosage: 1 G, BID ROUTE:UNKNOWN
  98. SULFASALAZINE [Suspect]
     Active Substance: SULFASALAZINE
     Dosage: 1000 MG, BID
     Route: 048
  99. SULFASALAZINE [Suspect]
     Active Substance: SULFASALAZINE
     Dosage: 1 G, BID ROUTE:UNKNOWN
  100. SULFASALAZINE [Suspect]
     Active Substance: SULFASALAZINE
     Dosage: 1000 MG, BID ROUTE:UNKNOWN
  101. SULFASALAZINE [Suspect]
     Active Substance: SULFASALAZINE
     Dosage: 2 G, QD ROUTE: UNKNOWN
  102. SULFASALAZINE [Suspect]
     Active Substance: SULFASALAZINE
  103. SULFASALAZINE [Suspect]
     Active Substance: SULFASALAZINE
     Dosage: 1000 MG, BID
     Route: 050
  104. PREDNISONE [Suspect]
     Active Substance: PREDNISONE
     Indication: Rheumatoid arthritis
     Route: 050
  105. PREDNISONE [Suspect]
     Active Substance: PREDNISONE
     Route: 048
  106. PREDNISONE [Suspect]
     Active Substance: PREDNISONE
     Route: 050
  107. FOLIC ACID [Suspect]
     Active Substance: FOLIC ACID
     Indication: Rheumatoid arthritis
  108. FOLIC ACID [Suspect]
     Active Substance: FOLIC ACID
     Route: 058
  109. FOLIC ACID [Suspect]
     Active Substance: FOLIC ACID
  110. FOLIC ACID [Suspect]
     Active Substance: FOLIC ACID
     Route: 058
  111. FOLIC ACID [Suspect]
     Active Substance: FOLIC ACID
     Route: 050
  112. FOLIC ACID [Suspect]
     Active Substance: FOLIC ACID
     Route: 058
  113. FOLIC ACID [Suspect]
     Active Substance: FOLIC ACID
  114. FOLIC ACID [Suspect]
     Active Substance: FOLIC ACID
     Route: 050
  115. FOLIC ACID [Suspect]
     Active Substance: FOLIC ACID
  116. FOLIC ACID [Suspect]
     Active Substance: FOLIC ACID
  117. FOLIC ACID [Suspect]
     Active Substance: FOLIC ACID
  118. CORTISONE ACETATE [Suspect]
     Active Substance: CORTISONE ACETATE
     Indication: Rheumatoid arthritis
  119. CORTISONE ACETATE [Suspect]
     Active Substance: CORTISONE ACETATE
  120. LEFLUNOMIDE [Suspect]
     Active Substance: LEFLUNOMIDE
     Indication: Rheumatoid arthritis
     Route: 050
  121. LEFLUNOMIDE [Suspect]
     Active Substance: LEFLUNOMIDE
     Route: 048
  122. STELARA [Suspect]
     Active Substance: USTEKINUMAB
     Indication: Psoriatic arthropathy
     Route: 050
  123. STELARA [Suspect]
     Active Substance: USTEKINUMAB
  124. STELARA [Suspect]
     Active Substance: USTEKINUMAB
     Route: 042
  125. STELARA [Suspect]
     Active Substance: USTEKINUMAB
  126. STELARA [Suspect]
     Active Substance: USTEKINUMAB
     Route: 058
  127. STELARA [Suspect]
     Active Substance: USTEKINUMAB
     Route: 042
  128. STELARA [Suspect]
     Active Substance: USTEKINUMAB
     Route: 058
  129. ENBREL [Suspect]
     Active Substance: ETANERCEPT
     Indication: Rheumatoid arthritis
     Route: 050
  130. ENBREL [Suspect]
     Active Substance: ETANERCEPT
     Indication: Psoriatic arthropathy
     Route: 058
  131. ENBREL [Suspect]
     Active Substance: ETANERCEPT
     Dosage: 50 MG, WE (QW)
     Route: 058
  132. ENBREL [Suspect]
     Active Substance: ETANERCEPT
     Dosage: 20 MG, WE (QW)
     Route: 058
  133. LEFLUNOMIDE [Suspect]
     Active Substance: LEFLUNOMIDE
     Indication: Product used for unknown indication
     Route: 050
  134. LEFLUNOMIDE [Suspect]
     Active Substance: LEFLUNOMIDE
  135. LEFLUNOMIDE [Suspect]
     Active Substance: LEFLUNOMIDE
  136. LEFLUNOMIDE [Suspect]
     Active Substance: LEFLUNOMIDE
     Route: 048
  137. ACETAMINOPHEN [Suspect]
     Active Substance: ACETAMINOPHEN
     Indication: Product used for unknown indication
  138. ACETAMINOPHEN [Suspect]
     Active Substance: ACETAMINOPHEN
  139. ACETAMINOPHEN [Suspect]
     Active Substance: ACETAMINOPHEN
  140. ACETAMINOPHEN [Suspect]
     Active Substance: ACETAMINOPHEN
  141. ACETAMINOPHEN [Suspect]
     Active Substance: ACETAMINOPHEN
  142. TRAMADOL HYDROCHLORIDE [Suspect]
     Active Substance: TRAMADOL HYDROCHLORIDE
     Indication: Product used for unknown indication
  143. TRAMADOL HYDROCHLORIDE [Suspect]
     Active Substance: TRAMADOL HYDROCHLORIDE
  144. METHOTREXATE [Suspect]
     Active Substance: METHOTREXATE
     Indication: Rheumatoid arthritis
     Dosage: 25 MG, WE (QW)
     Route: 048
  145. METHOTREXATE [Suspect]
     Active Substance: METHOTREXATE
  146. METHOTREXATE [Suspect]
     Active Substance: METHOTREXATE
     Route: 058
  147. METHOTREXATE [Suspect]
     Active Substance: METHOTREXATE
     Dosage: DOSE 15,  QD ROUTE:UNKNOWN
  148. METHOTREXATE [Suspect]
     Active Substance: METHOTREXATE
  149. METHOTREXATE [Suspect]
     Active Substance: METHOTREXATE
     Dosage: QD
     Route: 058
  150. METHOTREXATE [Suspect]
     Active Substance: METHOTREXATE
     Dosage: 25 MG, WE (QW)
     Route: 013
  151. METHOTREXATE [Suspect]
     Active Substance: METHOTREXATE
     Route: 048
  152. METHOTREXATE [Suspect]
     Active Substance: METHOTREXATE
     Dosage: 20 MG, QD
     Route: 048
  153. METHOTREXATE [Suspect]
     Active Substance: METHOTREXATE
     Route: 048
  154. METHOTREXATE [Suspect]
     Active Substance: METHOTREXATE
     Route: 050
  155. METHOTREXATE [Suspect]
     Active Substance: METHOTREXATE
  156. METHOTREXATE [Suspect]
     Active Substance: METHOTREXATE
     Route: 050
  157. METHOTREXATE [Suspect]
     Active Substance: METHOTREXATE
     Route: 050
  158. METHOTREXATE [Suspect]
     Active Substance: METHOTREXATE
     Route: 050
  159. METHOTREXATE [Suspect]
     Active Substance: METHOTREXATE
     Route: 050
  160. FLUMETHASONE PIVALATE [Suspect]
     Active Substance: FLUMETHASONE PIVALATE
     Indication: Rheumatoid arthritis
     Route: 050
  161. FLUMETHASONE PIVALATE [Suspect]
     Active Substance: FLUMETHASONE PIVALATE
  162. FLUMETHASONE PIVALATE [Suspect]
     Active Substance: FLUMETHASONE PIVALATE
  163. FLUMETHASONE PIVALATE [Suspect]
     Active Substance: FLUMETHASONE PIVALATE
     Route: 058
  164. PLAQUENIL [Suspect]
     Active Substance: HYDROXYCHLOROQUINE SULFATE
     Indication: Rheumatoid arthritis
     Route: 050
  165. PLAQUENIL [Suspect]
     Active Substance: HYDROXYCHLOROQUINE SULFATE
  166. ACETAMINOPHEN [Concomitant]
     Active Substance: ACETAMINOPHEN
     Indication: Product used for unknown indication
  167. MAGNESIUM [Concomitant]
     Active Substance: MAGNESIUM
     Indication: Product used for unknown indication
  168. GLUCOSAMINE [Concomitant]
     Active Substance: GLUCOSAMINE
     Indication: Product used for unknown indication
  169. GLUCOSAMINE [Concomitant]
     Active Substance: GLUCOSAMINE
  170. ERELZI [Suspect]
     Active Substance: ETANERCEPT-SZZS
     Indication: Rheumatoid arthritis
     Dosage: 50 MG, QD
     Route: 058
  171. ERELZI [Suspect]
     Active Substance: ETANERCEPT-SZZS
     Dosage: 50 MG (QW)
     Route: 058
  172. RAMIPRIL [Concomitant]
     Active Substance: RAMIPRIL
     Indication: Product used for unknown indication
  173. RAMIPRIL [Concomitant]
     Active Substance: RAMIPRIL
  174. CAFFEINE [Concomitant]
     Active Substance: CAFFEINE
     Indication: Product used for unknown indication
  175. Dom-piroxicam [Concomitant]
     Indication: Product used for unknown indication
  176. CETIRIZINE HYDROCHLORIDE [Suspect]
     Active Substance: CETIRIZINE HYDROCHLORIDE
     Indication: Product used for unknown indication
  177. CETIRIZINE HYDROCHLORIDE [Suspect]
     Active Substance: CETIRIZINE HYDROCHLORIDE
     Route: 048
  178. CETIRIZINE HYDROCHLORIDE [Suspect]
     Active Substance: CETIRIZINE HYDROCHLORIDE
  179. CETIRIZINE HYDROCHLORIDE [Suspect]
     Active Substance: CETIRIZINE HYDROCHLORIDE
  180. HUMIRA [Suspect]
     Active Substance: ADALIMUMAB
     Indication: Rheumatoid arthritis
     Route: 058
  181. HUMIRA [Suspect]
     Active Substance: ADALIMUMAB
     Indication: Psoriatic arthropathy
  182. HUMIRA [Suspect]
     Active Substance: ADALIMUMAB
  183. CETIRIZINE HYDROCHLORIDE\PSEUDOEPHEDRINE HYDROCHLORIDE [Suspect]
     Active Substance: CETIRIZINE HYDROCHLORIDE\PSEUDOEPHEDRINE HYDROCHLORIDE
     Indication: Rheumatoid arthritis
  184. CETIRIZINE HYDROCHLORIDE\PSEUDOEPHEDRINE HYDROCHLORIDE [Suspect]
     Active Substance: CETIRIZINE HYDROCHLORIDE\PSEUDOEPHEDRINE HYDROCHLORIDE
  185. CETIRIZINE HYDROCHLORIDE\PSEUDOEPHEDRINE HYDROCHLORIDE [Suspect]
     Active Substance: CETIRIZINE HYDROCHLORIDE\PSEUDOEPHEDRINE HYDROCHLORIDE
  186. NAPROXEN SODIUM [Suspect]
     Active Substance: NAPROXEN SODIUM
     Indication: Rheumatoid arthritis
     Dosage: 1000 MG, QD ROUTE:UNKNOWN
  187. NAPROXEN SODIUM [Suspect]
     Active Substance: NAPROXEN SODIUM
     Dosage: 500 MG, BID UNKNOWN
  188. NAPROXEN SODIUM [Suspect]
     Active Substance: NAPROXEN SODIUM
     Dosage: 500 MG, BID ROUTE : UNKNOWN
  189. CETIRIZINE HYDROCHLORIDE [Suspect]
     Active Substance: CETIRIZINE HYDROCHLORIDE
     Indication: Rheumatoid arthritis
     Route: 050
  190. CETIRIZINE HYDROCHLORIDE [Suspect]
     Active Substance: CETIRIZINE HYDROCHLORIDE
  191. CETIRIZINE HYDROCHLORIDE [Suspect]
     Active Substance: CETIRIZINE HYDROCHLORIDE
  192. CETIRIZINE HYDROCHLORIDE [Suspect]
     Active Substance: CETIRIZINE HYDROCHLORIDE
  193. PREDNISONE [Suspect]
     Active Substance: PREDNISONE
     Indication: Rheumatoid arthritis
  194. PREDNISONE [Suspect]
     Active Substance: PREDNISONE
     Route: 048
  195. PREDNISONE [Suspect]
     Active Substance: PREDNISONE
  196. COSENTYX [Suspect]
     Active Substance: SECUKINUMAB
     Indication: Psoriatic arthropathy
  197. COSENTYX [Suspect]
     Active Substance: SECUKINUMAB
  198. COSENTYX [Suspect]
     Active Substance: SECUKINUMAB
  199. TYLENOL WITH CODEINE [Concomitant]
     Active Substance: ACETAMINOPHEN\CODEINE PHOSPHATE
     Indication: Product used for unknown indication
  200. RISEDRONATE SODIUM [Concomitant]
     Active Substance: RISEDRONATE SODIUM
     Indication: Product used for unknown indication
  201. OXYCODONE TEREPHTHALATE [Suspect]
     Active Substance: OXYCODONE TEREPHTHALATE
     Indication: Product used for unknown indication
  202. OXYCODONE TEREPHTHALATE [Suspect]
     Active Substance: OXYCODONE TEREPHTHALATE
  203. ALENDRONIC ACID [Suspect]
     Active Substance: ALENDRONIC ACID
     Indication: Rheumatoid arthritis
  204. ALENDRONIC ACID [Suspect]
     Active Substance: ALENDRONIC ACID
  205. PREDNISONE [Suspect]
     Active Substance: PREDNISONE
     Indication: Rheumatoid arthritis
     Route: 050
  206. PREDNISONE [Suspect]
     Active Substance: PREDNISONE
  207. PREDNISONE [Suspect]
     Active Substance: PREDNISONE
  208. DESOGESTREL, ETHINYLOESTRADIOL [Concomitant]
     Indication: Product used for unknown indication
  209. MELOXICAM [Concomitant]
     Active Substance: MELOXICAM
     Indication: Product used for unknown indication
  210. MELOXICAM [Concomitant]
     Active Substance: MELOXICAM
  211. CHLORAPREP [Suspect]
     Active Substance: CHLORHEXIDINE GLUCONATE\ISOPROPYL ALCOHOL
     Indication: Product used for unknown indication
     Route: 050
  212. CHLORAPREP [Suspect]
     Active Substance: CHLORHEXIDINE GLUCONATE\ISOPROPYL ALCOHOL
  213. CHLORAPREP [Suspect]
     Active Substance: CHLORHEXIDINE GLUCONATE\ISOPROPYL ALCOHOL
  214. CHLORAPREP [Suspect]
     Active Substance: CHLORHEXIDINE GLUCONATE\ISOPROPYL ALCOHOL
     Route: 048
  215. CHLORAPREP [Suspect]
     Active Substance: CHLORHEXIDINE GLUCONATE\ISOPROPYL ALCOHOL
  216. CHLORAPREP [Suspect]
     Active Substance: CHLORHEXIDINE GLUCONATE\ISOPROPYL ALCOHOL
  217. DOXYCYCLINE [Concomitant]
     Active Substance: DOXYCYCLINE
     Indication: Product used for unknown indication
  218. DOXYCYCLINE [Concomitant]
     Active Substance: DOXYCYCLINE
  219. PHTHALYLSULFATHIAZOLE [Suspect]
     Active Substance: PHTHALYLSULFATHIAZOLE
     Indication: Rheumatoid arthritis
  220. PHTHALYLSULFATHIAZOLE [Suspect]
     Active Substance: PHTHALYLSULFATHIAZOLE
  221. PHTHALYLSULFATHIAZOLE [Suspect]
     Active Substance: PHTHALYLSULFATHIAZOLE
  222. PHTHALYLSULFATHIAZOLE [Suspect]
     Active Substance: PHTHALYLSULFATHIAZOLE
     Dosage: 1000 MG, BID, ROUTE;UNKNOWN
  223. PHTHALYLSULFATHIAZOLE [Suspect]
     Active Substance: PHTHALYLSULFATHIAZOLE
     Dosage: 1000 MG, BID, ROUTE:UNKNOWN
  224. PHTHALYLSULFATHIAZOLE [Suspect]
     Active Substance: PHTHALYLSULFATHIAZOLE
  225. PHTHALYLSULFATHIAZOLE [Suspect]
     Active Substance: PHTHALYLSULFATHIAZOLE
     Dosage: 2000 MG, QD, ROUTE:UNKNOWN
  226. PHTHALYLSULFATHIAZOLE [Suspect]
     Active Substance: PHTHALYLSULFATHIAZOLE
     Route: 016
  227. PHTHALYLSULFATHIAZOLE [Suspect]
     Active Substance: PHTHALYLSULFATHIAZOLE
     Dosage: 400 MG, QD ROUTE:UNKNOWN
  228. PHTHALYLSULFATHIAZOLE [Suspect]
     Active Substance: PHTHALYLSULFATHIAZOLE
     Route: 048
  229. PHTHALYLSULFATHIAZOLE [Suspect]
     Active Substance: PHTHALYLSULFATHIAZOLE
  230. PHTHALYLSULFATHIAZOLE [Suspect]
     Active Substance: PHTHALYLSULFATHIAZOLE
     Route: 050
  231. DEXAMETHASONE [Concomitant]
     Active Substance: DEXAMETHASONE
     Indication: Product used for unknown indication
  232. DEXAMETHASONE [Concomitant]
     Active Substance: DEXAMETHASONE
  233. HYDROCORTISONE PROBUTATE [Suspect]
     Active Substance: HYDROCORTISONE PROBUTATE
     Indication: Product used for unknown indication
  234. HYDROCORTISONE PROBUTATE [Suspect]
     Active Substance: HYDROCORTISONE PROBUTATE
  235. Ergocalciferol;Potassium fluoride;Retinol acetate;Sodium ascorbate [Concomitant]
     Indication: Product used for unknown indication
  236. PLAQUENIL [Suspect]
     Active Substance: HYDROXYCHLOROQUINE SULFATE
     Indication: Rheumatoid arthritis
     Route: 048
  237. PLAQUENIL [Suspect]
     Active Substance: HYDROXYCHLOROQUINE SULFATE
  238. DICLOFENAC SODIUM [Suspect]
     Active Substance: DICLOFENAC SODIUM
     Indication: Product used for unknown indication
  239. DICLOFENAC SODIUM [Suspect]
     Active Substance: DICLOFENAC SODIUM
  240. DICLOFENAC SODIUM [Suspect]
     Active Substance: DICLOFENAC SODIUM
  241. MYCOPHENOLATE MOFETIL [Suspect]
     Active Substance: MYCOPHENOLATE MOFETIL
     Indication: Product used for unknown indication
  242. MYCOPHENOLATE MOFETIL [Suspect]
     Active Substance: MYCOPHENOLATE MOFETIL
  243. CALCIUM [Concomitant]
     Active Substance: CALCIUM
     Indication: Product used for unknown indication
  244. CORTISONE [Suspect]
     Active Substance: CORTISONE
     Indication: Rheumatoid arthritis
     Route: 050
  245. CORTISONE [Suspect]
     Active Substance: CORTISONE
  246. CORTISONE [Suspect]
     Active Substance: CORTISONE
     Route: 050
  247. CORTISONE [Suspect]
     Active Substance: CORTISONE
  248. CORTISONE [Suspect]
     Active Substance: CORTISONE
  249. CORTISONE [Suspect]
     Active Substance: CORTISONE
  250. CORTISONE [Suspect]
     Active Substance: CORTISONE
  251. CORTISONE [Suspect]
     Active Substance: CORTISONE
     Route: 050
  252. CORTISONE [Suspect]
     Active Substance: CORTISONE
     Route: 050
  253. TOPICORT [Suspect]
     Active Substance: DESOXIMETASONE
     Indication: Rheumatoid arthritis
     Route: 058
  254. TOPICORT [Suspect]
     Active Substance: DESOXIMETASONE
  255. IBUPROFEN [Concomitant]
     Active Substance: IBUPROFEN
     Indication: Product used for unknown indication
  256. IBUPROFEN [Concomitant]
     Active Substance: IBUPROFEN
  257. SIMPONI [Suspect]
     Active Substance: GOLIMUMAB
     Indication: Rheumatoid arthritis
     Dosage: 50 MG, QMO DOSE FORM:SOLUTION, ROUTE:UNKNOWN
  258. SIMPONI [Suspect]
     Active Substance: GOLIMUMAB
     Route: 050
  259. SIMPONI [Suspect]
     Active Substance: GOLIMUMAB
  260. SIMPONI [Suspect]
     Active Substance: GOLIMUMAB
  261. SIMPONI [Suspect]
     Active Substance: GOLIMUMAB
  262. SIMPONI [Suspect]
     Active Substance: GOLIMUMAB
  263. SIMPONI [Suspect]
     Active Substance: GOLIMUMAB
     Route: 058
  264. SIMPONI [Suspect]
     Active Substance: GOLIMUMAB
     Dosage: 50 MG, Q24H, SOLUTION
     Route: 050
  265. VITAMIN D NOS [Concomitant]
     Active Substance: CHOLECALCIFEROL\ERGOCALCIFEROL
     Indication: Product used for unknown indication
  266. CORTISONE [Suspect]
     Active Substance: CORTISONE
     Indication: Rheumatoid arthritis
     Route: 048
  267. CORTISONE [Suspect]
     Active Substance: CORTISONE
  268. CORTISONE [Suspect]
     Active Substance: CORTISONE
     Route: 058
  269. CORTISONE [Suspect]
     Active Substance: CORTISONE
     Route: 048
  270. CORTISONE [Suspect]
     Active Substance: CORTISONE
  271. CORTISONE [Suspect]
     Active Substance: CORTISONE
  272. CORTISONE [Suspect]
     Active Substance: CORTISONE
     Route: 058
  273. CORTISONE [Suspect]
     Active Substance: CORTISONE
  274. CORTISONE [Suspect]
     Active Substance: CORTISONE
  275. DESOXIMETASONE [Suspect]
     Active Substance: DESOXIMETASONE
     Indication: Rheumatoid arthritis
     Dosage: 25 MG, WE (QW)
     Route: 048
  276. DESOXIMETASONE [Suspect]
     Active Substance: DESOXIMETASONE
  277. DESOXIMETASONE [Suspect]
     Active Substance: DESOXIMETASONE
  278. DESOXIMETASONE [Suspect]
     Active Substance: DESOXIMETASONE
     Route: 050
  279. DESOXIMETASONE [Suspect]
     Active Substance: DESOXIMETASONE
     Route: 050
  280. OXYCODONE [Suspect]
     Active Substance: OXYCODONE
     Indication: Product used for unknown indication
  281. OXYCODONE [Suspect]
     Active Substance: OXYCODONE
  282. CETIRIZINE [Suspect]
     Active Substance: CETIRIZINE HYDROCHLORIDE
     Indication: Rheumatoid arthritis
  283. CETIRIZINE [Suspect]
     Active Substance: CETIRIZINE HYDROCHLORIDE
  284. CETIRIZINE [Suspect]
     Active Substance: CETIRIZINE HYDROCHLORIDE
     Route: 048
  285. CETIRIZINE [Suspect]
     Active Substance: CETIRIZINE HYDROCHLORIDE
  286. CETIRIZINE HYDROCHLORIDE [Suspect]
     Active Substance: CETIRIZINE HYDROCHLORIDE
     Indication: Product used for unknown indication
  287. CETIRIZINE HYDROCHLORIDE [Suspect]
     Active Substance: CETIRIZINE HYDROCHLORIDE
  288. CETIRIZINE HYDROCHLORIDE [Suspect]
     Active Substance: CETIRIZINE HYDROCHLORIDE
  289. CETIRIZINE HYDROCHLORIDE [Suspect]
     Active Substance: CETIRIZINE HYDROCHLORIDE
     Route: 050
  290. CETIRIZINE HYDROCHLORIDE\PSEUDOEPHEDRINE HYDROCHLORIDE [Suspect]
     Active Substance: CETIRIZINE HYDROCHLORIDE\PSEUDOEPHEDRINE HYDROCHLORIDE
     Indication: Rheumatoid arthritis
  291. CETIRIZINE HYDROCHLORIDE\PSEUDOEPHEDRINE HYDROCHLORIDE [Suspect]
     Active Substance: CETIRIZINE HYDROCHLORIDE\PSEUDOEPHEDRINE HYDROCHLORIDE
     Route: 048
  292. CETIRIZINE HYDROCHLORIDE\PSEUDOEPHEDRINE HYDROCHLORIDE [Suspect]
     Active Substance: CETIRIZINE HYDROCHLORIDE\PSEUDOEPHEDRINE HYDROCHLORIDE
  293. QUETIAPINE [Concomitant]
     Active Substance: QUETIAPINE
     Indication: Product used for unknown indication
  294. QUETIAPINE [Concomitant]
     Active Substance: QUETIAPINE
  295. LEVOTHYROXINE SODIUM [Concomitant]
     Active Substance: LEVOTHYROXINE SODIUM
     Indication: Product used for unknown indication
  296. LEVOTHYROXINE SODIUM [Concomitant]
     Active Substance: LEVOTHYROXINE SODIUM
  297. ALENDRONATE SODIUM [Suspect]
     Active Substance: ALENDRONATE SODIUM
     Indication: Rheumatoid arthritis
     Route: 050
  298. ALENDRONATE SODIUM [Suspect]
     Active Substance: ALENDRONATE SODIUM
     Route: 048
  299. ALENDRONATE SODIUM [Suspect]
     Active Substance: ALENDRONATE SODIUM
  300. ALENDRONATE SODIUM [Suspect]
     Active Substance: ALENDRONATE SODIUM
  301. ADALIMUMAB [Suspect]
     Active Substance: ADALIMUMAB
     Indication: Psoriatic arthropathy
     Route: 050
  302. ADALIMUMAB [Suspect]
     Active Substance: ADALIMUMAB
     Route: 058
  303. ADALIMUMAB [Suspect]
     Active Substance: ADALIMUMAB
     Route: 058
  304. ADALIMUMAB [Suspect]
     Active Substance: ADALIMUMAB
     Route: 048
  305. ORENCIA [Suspect]
     Active Substance: ABATACEPT
     Indication: Rheumatoid arthritis
     Route: 050
  306. ORENCIA [Suspect]
     Active Substance: ABATACEPT
     Route: 042
  307. ORENCIA [Suspect]
     Active Substance: ABATACEPT
     Route: 042
  308. ORENCIA [Suspect]
     Active Substance: ABATACEPT
     Route: 050
  309. ORENCIA [Suspect]
     Active Substance: ABATACEPT
     Route: 042
  310. ORENCIA [Suspect]
     Active Substance: ABATACEPT
     Route: 050
  311. ORENCIA [Suspect]
     Active Substance: ABATACEPT
     Route: 042
  312. ORENCIA [Suspect]
     Active Substance: ABATACEPT
     Route: 050
  313. ORENCIA [Suspect]
     Active Substance: ABATACEPT
  314. ORENCIA [Suspect]
     Active Substance: ABATACEPT
  315. ORENCIA [Suspect]
     Active Substance: ABATACEPT
     Route: 058
  316. REMICADE [Suspect]
     Active Substance: INFLIXIMAB
     Indication: Rheumatoid arthritis
     Route: 050
  317. REMICADE [Suspect]
     Active Substance: INFLIXIMAB
     Route: 058
  318. REMICADE [Suspect]
     Active Substance: INFLIXIMAB
     Route: 050
  319. REMICADE [Suspect]
     Active Substance: INFLIXIMAB
     Route: 042
  320. ACETAMINOPHEN\CAFFEINE\DIHYDROCODEINE BITARTRATE [Concomitant]
     Active Substance: ACETAMINOPHEN\CAFFEINE\DIHYDROCODEINE BITARTRATE
     Indication: Product used for unknown indication
  321. ETHINYL ESTRADIOL [Concomitant]
     Active Substance: ETHINYL ESTRADIOL
     Indication: Product used for unknown indication
  322. CELECOXIB [Suspect]
     Active Substance: CELECOXIB
     Indication: Product used for unknown indication
     Dosage: 20 MG, QD
     Route: 050
  323. CELECOXIB [Suspect]
     Active Substance: CELECOXIB
     Dosage: 20 MG, QD
     Route: 050
  324. CELECOXIB [Suspect]
     Active Substance: CELECOXIB
     Dosage: 2 DOSAGE FORM, QD
     Route: 050
  325. LANSOPRAZOLE\MOSAPRIDE CITRATE [Concomitant]
     Active Substance: LANSOPRAZOLE\MOSAPRIDE CITRATE
     Indication: Product used for unknown indication
  326. DESOXIMETASONE [Concomitant]
     Active Substance: DESOXIMETASONE
     Indication: Product used for unknown indication
  327. SULFAMETHOXAZOLE AND TRIMETHOPRIM [Suspect]
     Active Substance: SULFAMETHOXAZOLE\TRIMETHOPRIM
     Indication: Product used for unknown indication
  328. TOPICORT [Suspect]
     Active Substance: DESOXIMETASONE
     Indication: Rheumatoid arthritis
     Route: 050
  329. TOPICORT [Suspect]
     Active Substance: DESOXIMETASONE
  330. LISINOPRIL [Concomitant]
     Active Substance: LISINOPRIL
     Indication: Product used for unknown indication
  331. PREGABALIN [Suspect]
     Active Substance: PREGABALIN
     Indication: Product used for unknown indication
  332. DESOGESTREL AND ETHINYL ESTRADIOL [Concomitant]
     Active Substance: DESOGESTREL\ETHINYL ESTRADIOL
     Indication: Product used for unknown indication
  333. ACETAMINOPHEN [Concomitant]
     Active Substance: ACETAMINOPHEN
     Indication: Product used for unknown indication
  334. PSEUDOEPHEDRINE HYDROCHLORIDE [Suspect]
     Active Substance: PSEUDOEPHEDRINE HYDROCHLORIDE
     Indication: Rheumatoid arthritis
  335. PSEUDOEPHEDRINE HYDROCHLORIDE [Suspect]
     Active Substance: PSEUDOEPHEDRINE HYDROCHLORIDE
  336. LEFLUNOMIDE [Suspect]
     Active Substance: LEFLUNOMIDE
     Indication: Product used for unknown indication
     Route: 050
  337. LEFLUNOMIDE [Suspect]
     Active Substance: LEFLUNOMIDE
     Route: 050
  338. LEFLUNOMIDE [Suspect]
     Active Substance: LEFLUNOMIDE
     Route: 050
  339. LEFLUNOMIDE [Suspect]
     Active Substance: LEFLUNOMIDE
     Route: 050
  340. ACETAMINOPHEN\CAFFEINE\LEVOCETIRIZINE\PHENYLEPHRINE [Concomitant]
     Active Substance: ACETAMINOPHEN\CAFFEINE\LEVOCETIRIZINE\PHENYLEPHRINE
     Indication: Product used for unknown indication
  341. FLUMETHASONE PIVALATE [Suspect]
     Active Substance: FLUMETHASONE PIVALATE
     Indication: Rheumatoid arthritis
  342. FLUMETHASONE PIVALATE [Suspect]
     Active Substance: FLUMETHASONE PIVALATE
  343. HYRIMOZ [Suspect]
     Active Substance: ADALIMUMAB-ADAZ
     Indication: Psoriatic arthropathy
     Route: 050
  344. HYRIMOZ [Suspect]
     Active Substance: ADALIMUMAB-ADAZ
     Route: 050
  345. HYRIMOZ [Suspect]
     Active Substance: ADALIMUMAB-ADAZ
     Route: 050
  346. HYRIMOZ [Suspect]
     Active Substance: ADALIMUMAB-ADAZ
     Route: 050

REACTIONS (50)
  - Musculoskeletal pain [Fatal]
  - Pain [Fatal]
  - Rash [Fatal]
  - Prescribed overdose [Fatal]
  - Night sweats [Fatal]
  - Sleep disorder due to general medical condition, insomnia type [Fatal]
  - Drug intolerance [Fatal]
  - Pyrexia [Fatal]
  - Abdominal pain [Fatal]
  - Lower respiratory tract infection [Fatal]
  - Mobility decreased [Fatal]
  - Osteoarthritis [Fatal]
  - Peripheral swelling [Fatal]
  - Synovitis [Fatal]
  - Malaise [Fatal]
  - Product use issue [Fatal]
  - Wound [Fatal]
  - Off label use [Fatal]
  - Therapy non-responder [Fatal]
  - Oedema [Fatal]
  - Rheumatoid arthritis [Fatal]
  - Musculoskeletal stiffness [Fatal]
  - Liver injury [Fatal]
  - Injury [Fatal]
  - Stomatitis [Fatal]
  - Systemic lupus erythematosus [Fatal]
  - Swelling [Fatal]
  - Blister [Fatal]
  - Urticaria [Fatal]
  - Pruritus [Fatal]
  - Wheezing [Fatal]
  - Swollen joint count increased [Fatal]
  - Nausea [Fatal]
  - Rheumatoid factor positive [Fatal]
  - Lung disorder [Fatal]
  - Nasopharyngitis [Fatal]
  - Treatment failure [Fatal]
  - Muscle injury [Fatal]
  - Infusion related reaction [Fatal]
  - Rheumatic fever [Fatal]
  - Drug ineffective [Fatal]
  - Lower limb fracture [Fatal]
  - Road traffic accident [Fatal]
  - Psoriatic arthropathy [Fatal]
  - Pericarditis [Fatal]
  - Vomiting [Fatal]
  - Weight increased [Fatal]
  - Sinusitis [Fatal]
  - Sciatica [Fatal]
  - Type 2 diabetes mellitus [Fatal]
